FAERS Safety Report 9825541 (Version 2)
Quarter: 2014Q1

REPORT INFORMATION
  Report Type: Report from Study
  Country: CA (occurrence: CA)
  Receive Date: 20140117
  Receipt Date: 20140117
  Transmission Date: 20141002
  Serious: Yes (Death)
  Sender: FDA-Public Use
  Company Number: PHHY2013CA137267

PATIENT
  Age: 52 Year
  Sex: Female

DRUGS (5)
  1. SANDOSTATIN (OCTREOTIDE ACETATE) [Suspect]
     Indication: OVARIAN CANCER
     Dosage: 100 UG, BID FOR 14 DAYS
     Route: 058
     Dates: start: 20131107
  2. SANDOSTATIN (OCTREOTIDE ACETATE) [Suspect]
     Indication: OFF LABEL USE
  3. SANDOSTATIN LAR [Suspect]
     Indication: OVARIAN CANCER
     Dosage: 30 MG, QMO
     Route: 030
     Dates: start: 20131125
  4. SANDOSTATIN LAR [Suspect]
     Indication: OFF LABEL USE
  5. CHEMOTHERAPEUTICS [Concomitant]
     Dosage: UNK UKN, UNK
     Dates: start: 20131120

REACTIONS (2)
  - Death [Fatal]
  - Malaise [Unknown]
